FAERS Safety Report 11053028 (Version 1)
Quarter: 2015Q2

REPORT INFORMATION
  Report Type: Report from Study
  Country: DE (occurrence: DE)
  Receive Date: 20150421
  Receipt Date: 20150421
  Transmission Date: 20150821
  Serious: Yes (Hospitalization, Other)
  Sender: FDA-Public Use
  Company Number: DE-TEVA-543525GER

PATIENT
  Age: 48 Year
  Sex: Female
  Weight: 67 kg

DRUGS (5)
  1. MIRTAZAPIN [Concomitant]
     Active Substance: MIRTAZAPINE
     Indication: DYSTHYMIC DISORDER
  2. COPAXONE [Suspect]
     Active Substance: GLATIRAMER ACETATE
     Indication: MULTIPLE SCLEROSIS
     Dosage: 20 MILLIGRAM DAILY;
     Dates: start: 20121015
  3. ELONTRIL [Concomitant]
     Active Substance: BUPROPION HYDROCHLORIDE
     Indication: BULIMIA NERVOSA
  4. MIRTAZAPIN [Concomitant]
     Active Substance: MIRTAZAPINE
     Indication: BULIMIA NERVOSA
     Dosage: 30 MILLIGRAM DAILY;
     Route: 048
  5. ELONTRIL [Concomitant]
     Active Substance: BUPROPION HYDROCHLORIDE
     Indication: DYSTHYMIC DISORDER
     Dosage: 300 MILLIGRAM DAILY;
     Route: 048

REACTIONS (1)
  - Tick-borne viral encephalitis [Recovered/Resolved]

NARRATIVE: CASE EVENT DATE: 201408
